FAERS Safety Report 4349800-7 (Version None)
Quarter: 2004Q2

REPORT INFORMATION
  Report Type: 
  Country: None (occurrence: None)
  Receive Date: 20040428
  Receipt Date: 20040428
  Transmission Date: 20050107
  Serious: Yes (Other)
  Sender: FDA-Public Use
  Company Number: None

PATIENT
  Age: 87 Year
  Sex: Male

DRUGS (2)
  1. DONEPEZIL HCL [Suspect]
  2. DOXAZOSIN [Suspect]

REACTIONS (2)
  - BLOOD PRESSURE FLUCTUATION [None]
  - HEART RATE ABNORMAL [None]
